FAERS Safety Report 19932519 (Version 1)
Quarter: 2021Q4

REPORT INFORMATION
  Report Type: Spontaneous
  Country: US (occurrence: US)
  Receive Date: 20211007
  Receipt Date: 20211007
  Transmission Date: 20220303
  Serious: Yes (Other)
  Sender: FDA-Public Use
  Company Number: None

PATIENT
  Age: 43 Year
  Sex: Female
  Weight: 102 kg

DRUGS (22)
  1. PRIVIGEN [Suspect]
     Active Substance: HUMAN IMMUNOGLOBULIN G
     Indication: Immunodeficiency common variable
     Dosage: ?          OTHER FREQUENCY:EVERY 4 WEEKS;
     Route: 041
     Dates: start: 20191212
  2. acetylcysteine 200 mg inhalation [Concomitant]
  3. aimovig autoinjecter SQ [Concomitant]
  4. aspirin ec 81 mg po [Concomitant]
  5. brovana 15 mcg inhalation [Concomitant]
  6. celebrex 20 mg po [Concomitant]
  7. furosemide 20 mg po [Concomitant]
  8. humalog SQ [Concomitant]
  9. Lispro SQ [Concomitant]
  10. duoneb inhalation [Concomitant]
  11. jardiance 25 mg po [Concomitant]
  12. synthroid 150 mcg po [Concomitant]
  13. metformin 500 mg po [Concomitant]
  14. mag oxide 400 mg po [Concomitant]
  15. metoprolol 50 mg po [Concomitant]
  16. paxil 10 mg po [Concomitant]
  17. pregabalin 200 mg po [Concomitant]
  18. quietepine 200 mg po [Concomitant]
  19. rosuvastatin 5 mg po [Concomitant]
  20. Victoza 1.8 mg SQ [Concomitant]
  21. tresiba SQ [Concomitant]
  22. TOBRAMYCIN INHALATION [Concomitant]
     Active Substance: TOBRAMYCIN

REACTIONS (3)
  - Peripheral swelling [None]
  - Throat tightness [None]
  - Feeling abnormal [None]

NARRATIVE: CASE EVENT DATE: 20210928
